FAERS Safety Report 5305720-2 (Version None)
Quarter: 2007Q2

REPORT INFORMATION
  Report Type: 
  Country: None (occurrence: None)
  Receive Date: 20070424
  Receipt Date: 20070418
  Transmission Date: 20071010
  Serious: Yes (Hospitalization)
  Sender: FDA-Public Use
  Company Number: US-AVENTIS-200712790US

PATIENT
  Age: 86 Year
  Sex: Male

DRUGS (9)
  1. LANTUS [Suspect]
     Dosage: DOSE: 22-23
     Dates: start: 20060201
  2. OPTICLIK (INSULIN INJECTION PEN) [Suspect]
     Dates: start: 20060301
  3. METFORMIN HCL [Concomitant]
     Dosage: DOSE: UNK
  4. THEOPHYLLINE [Concomitant]
     Dosage: DOSE: UNK
  5. FUROSEMIDE [Concomitant]
     Dosage: DOSE: UNK
  6. LEQUIN [Concomitant]
     Dosage: DOSE: UNK
  7. ASPIRIN [Concomitant]
     Dosage: DOSE: UNK
  8. DIOVAN [Concomitant]
     Dosage: DOSE: UNK
  9. LOVASTATIN [Concomitant]
     Dosage: DOSE: UNK

REACTIONS (3)
  - BLOOD GLUCOSE INCREASED [None]
  - COGNITIVE DISORDER [None]
  - PNEUMONIA [None]
